FAERS Safety Report 9668477 (Version 1)
Quarter: 2013Q4

REPORT INFORMATION
  Report Type: Spontaneous
  Country: US (occurrence: US)
  Receive Date: 20131105
  Receipt Date: 20131105
  Transmission Date: 20140711
  Serious: No
  Sender: FDA-Public Use
  Company Number: US-B.I. PHARMACEUTICALS,INC./RIDGEFIELD-2013-BI-34166BP

PATIENT
  Sex: Female

DRUGS (1)
  1. CATAPRES TTS [Suspect]
     Indication: HYPERTENSION

REACTIONS (1)
  - Skin irritation [Unknown]
